FAERS Safety Report 10563163 (Version 2)
Quarter: 2015Q2

REPORT INFORMATION
  Report Type: Report from Study
  Country: CA (occurrence: CA)
  Receive Date: 20141104
  Receipt Date: 20150519
  Transmission Date: 20150821
  Serious: Yes (Hospitalization)
  Sender: FDA-Public Use
  Company Number: CA-SA-2014SA147409

PATIENT
  Age: 68 Year
  Sex: Male
  Weight: 99.79 kg

DRUGS (10)
  1. CELEBREX [Concomitant]
     Active Substance: CELECOXIB
  2. PREDNISONE. [Concomitant]
     Active Substance: PREDNISONE
     Dosage: DOSE: 10 MG OR 7.5 MG, 1   IN  1  AS  NECESSARY
     Dates: start: 20030219
  3. RAMIPRIL. [Concomitant]
     Active Substance: RAMIPRIL
     Dosage: 1   IN  1  DAY
  4. REMICADE [Suspect]
     Active Substance: INFLIXIMAB
     Indication: RHEUMATOID ARTHRITIS
     Dosage: FORM: LYOPHILIZED POWDER INTRAVENOUS?DOSE: 1 EVERY 6 WEEKS
     Route: 042
     Dates: start: 20030207, end: 20121005
  5. ARAVA [Suspect]
     Active Substance: LEFLUNOMIDE
     Route: 065
     Dates: start: 20060802, end: 20070313
  6. CELEBREX [Concomitant]
     Active Substance: CELECOXIB
     Dosage: DOSE: 1)   100  MG,   1   IN  1   DAY ?2)   200  MG,   1   IN  1   DAY
     Dates: start: 20121005
  7. METHOTREXATE [Suspect]
     Active Substance: METHOTREXATE
     Route: 065
     Dates: start: 19900101, end: 20060613
  8. HYDROCHLOROTHIAZIDE. [Concomitant]
     Active Substance: HYDROCHLOROTHIAZIDE
     Dosage: DOSAGE:  1/2  TABLET  ONCE  A   DAY
  9. CRESTOR [Concomitant]
     Active Substance: ROSUVASTATIN CALCIUM
     Dosage: 1   IN  1   DAY
     Route: 048
  10. METHOTREXATE [Suspect]
     Active Substance: METHOTREXATE
     Route: 065
     Dates: start: 20070327, end: 20120801

REACTIONS (4)
  - Intestinal polyp [Unknown]
  - Lung neoplasm malignant [Recovered/Resolved]
  - Knee operation [Unknown]
  - Surgery [Unknown]

NARRATIVE: CASE EVENT DATE: 201210
